FAERS Safety Report 4762924-5 (Version None)
Quarter: 2005Q3

REPORT INFORMATION
  Report Type: 
  Country: None (occurrence: None)
  Receive Date: 20050907
  Receipt Date: 20050830
  Transmission Date: 20060218
  Serious: Yes (Other)
  Sender: FDA-Public Use
  Company Number: PHEH2005US09690

PATIENT
  Age: 75 Year
  Sex: Female

DRUGS (3)
  1. ZOMETA [Suspect]
     Indication: BREAST CANCER METASTATIC
     Dosage: 4 MG, QMO
     Route: 042
     Dates: start: 20030305, end: 20050705
  2. FEMARA [Concomitant]
     Indication: BREAST CANCER
  3. AREDIA [Suspect]
     Indication: OSTEOPOROSIS
     Dosage: 60 MG, UNK

REACTIONS (11)
  - ADVERSE DRUG REACTION [None]
  - ASEPTIC NECROSIS BONE [None]
  - BASAL CELL CARCINOMA [None]
  - BLOOD GLUCOSE ABNORMAL [None]
  - CREPITATIONS [None]
  - IMPAIRED HEALING [None]
  - ORAL INFECTION [None]
  - SKIN NEOPLASM EXCISION [None]
  - TOOTH DISORDER [None]
  - TOOTH EXTRACTION [None]
  - WEIGHT DECREASED [None]
